FAERS Safety Report 11294621 (Version 1)
Quarter: 2015Q2

REPORT INFORMATION
  Report Type: Spontaneous
  Country: US (occurrence: None)
  Receive Date: 20150623
  Receipt Date: 20150623
  Transmission Date: 20150821
  Serious: Yes (Other)
  Sender: FDA-Public Use
  Company Number: RB-65786-2014

PATIENT
  Age: 62 Year
  Sex: Female

DRUGS (1)
  1. GUAIFENESIN W/DEXTROMETHORPHAN 1200 MG (RECKITT BENCKISER) [Suspect]
     Active Substance: DEXTROMETHORPHAN\GUAIFENESIN
     Indication: PRODUCT USED FOR UNKNOWN INDICATION
     Route: 048
     Dates: start: 20140421

REACTIONS (6)
  - Hypersensitivity [None]
  - Pruritus [None]
  - Swelling face [None]
  - Eye irritation [None]
  - Dyspnoea [None]
  - Chest discomfort [None]

NARRATIVE: CASE EVENT DATE: 20140421
